FAERS Safety Report 24268197 (Version 1)
Quarter: 2024Q3

REPORT INFORMATION
  Report Type: Spontaneous
  Country: AR (occurrence: AR)
  Receive Date: 20240830
  Receipt Date: 20240830
  Transmission Date: 20241017
  Serious: Yes (Hospitalization)
  Sender: GLAXOSMITHKLINE
  Company Number: AR-GLAXOSMITHKLINE-AR2024AMR030407

PATIENT

DRUGS (2)
  1. NUCALA [Suspect]
     Active Substance: MEPOLIZUMAB
     Indication: Asthma
     Dosage: 100 MG, Q4W
     Dates: start: 20230529
  2. NUCALA [Suspect]
     Active Substance: MEPOLIZUMAB
     Indication: Asthma
     Dosage: 100 MG, Q4W

REACTIONS (7)
  - Hospitalisation [Recovered/Resolved]
  - Malaise [Recovering/Resolving]
  - Feeling abnormal [Recovering/Resolving]
  - Influenza [Recovered/Resolved]
  - Discomfort [Recovered/Resolved]
  - Product administration error [Recovered/Resolved]
  - Incorrect dose administered [Recovered/Resolved]

NARRATIVE: CASE EVENT DATE: 20240305
